FAERS Safety Report 6155065-6 (Version None)
Quarter: 2009Q2

REPORT INFORMATION
  Report Type: 
  Country: None (occurrence: None)
  Receive Date: 20090410
  Receipt Date: 20090401
  Transmission Date: 20091009
  Serious: Yes (Life-Threatening)
  Sender: FDA-Public Use
  Company Number: GXKR2009GB04173

PATIENT
  Age: 75 Year
  Sex: Female

DRUGS (6)
  1. LORATADINE [Suspect]
     Indication: DRUG ERUPTION
     Dosage: 10 MG, QD, ORAL
     Route: 048
     Dates: start: 20090228, end: 20090228
  2. SIMVASTATIN [Suspect]
     Indication: BLOOD CHOLESTEROL INCREASED
     Dosage: 20 MG, QD, ORAL
     Route: 048
  3. ADIZEM - SLOW RELEASE (DILTIAZEM HYDROCHLORIDE) [Concomitant]
  4. ACETYLSALICYLIC ACID (ACETYLSALICYLIC ACID) [Concomitant]
  5. ISOSORBIDE MONONITRATE [Concomitant]
  6. RAMIPRIL [Concomitant]

REACTIONS (1)
  - ANGINA PECTORIS [None]
